FAERS Safety Report 16154981 (Version 1)
Quarter: 2019Q2

REPORT INFORMATION
  Report Type: Spontaneous
  Country: DE (occurrence: DE)
  Receive Date: 20190403
  Receipt Date: 20190403
  Transmission Date: 20190711
  Serious: Yes (Hospitalization)
  Sender: FDA-Public Use
  Company Number: DE-ANIPHARMA-2019-DE-000040

PATIENT
  Sex: Male
  Weight: 105 kg

DRUGS (20)
  1. METFORMIN HYDROCHLORIDE. [Concomitant]
     Active Substance: METFORMIN HYDROCHLORIDE
     Dosage: 850 MG QD /  EVERY DAY / UNK / UNK
     Route: 065
  2. BIFITERAL [Concomitant]
     Active Substance: LACTULOSE
     Dosage: UNK / UNK
     Route: 065
     Dates: start: 20150415
  3. METOBETA [Concomitant]
     Active Substance: METOPROLOL TARTRATE
     Dosage: 47.5MG BID/ UNK
     Route: 065
  4. TAMSULOSIN [Concomitant]
     Active Substance: TAMSULOSIN
     Dosage: UNK
     Route: 065
     Dates: start: 20150415
  5. CORAL [Concomitant]
     Active Substance: TRICLOSAN
     Dosage: UNK
     Route: 065
     Dates: start: 2007
  6. CANDESARTAN CILEXETIL AND HYDROCHLOROTHIAZIDE [Suspect]
     Active Substance: CANDESARTAN CILEXETIL\HYDROCHLOROTHIAZIDE
     Indication: PRODUCT USED FOR UNKNOWN INDICATION
     Dosage: EVERY DAY
     Route: 048
     Dates: start: 20181115
  7. FENTANYL. [Concomitant]
     Active Substance: FENTANYL
     Dosage: Q72H
     Route: 065
     Dates: start: 2005, end: 200806
  8. AMLODIPINE [Concomitant]
     Active Substance: AMLODIPINE BESYLATE
     Dosage: UNK / UNK DOSE: 5 MG QD / DOSE:5 MG BID
     Route: 065
     Dates: start: 20090701
  9. METOPROLOL SUCCINATE. [Concomitant]
     Active Substance: METOPROLOL SUCCINATE
     Dosage: UNK/ UNK/ UNK
     Route: 065
  10. NITROLINGUAL [Concomitant]
     Active Substance: NITROGLYCERIN
     Dosage: UNK
     Route: 065
     Dates: start: 20121129
  11. MOXOBETA [Concomitant]
     Active Substance: MOXONIDINE
     Dosage: .3 MG UNK / UNK
     Route: 065
  12. COLCHYSAT [Concomitant]
     Dosage: UNK
     Route: 065
     Dates: start: 20181219
  13. CARMEN [Concomitant]
     Active Substance: LERCANIDIPINE
     Dosage: UNK
     Route: 065
     Dates: start: 2011
  14. CO-DIOVAN [Suspect]
     Active Substance: HYDROCHLOROTHIAZIDE\VALSARTAN
     Dosage: TWO TIMES A DAY / DOSE TEXT: 1 A
     Route: 065
     Dates: start: 2004
  15. MAGNESIUM [Concomitant]
     Active Substance: MAGNESIUM
     Dosage: UNK
     Route: 065
     Dates: start: 2008
  16. ALLOPURINOL. [Concomitant]
     Active Substance: ALLOPURINOL
     Dosage: UNK
     Route: 065
  17. ASPIRIN. [Concomitant]
     Active Substance: ASPIRIN
     Dosage: UNK
     Route: 065
  18. CLEXANE [Concomitant]
     Active Substance: ENOXAPARIN SODIUM
     Dosage: UNK
     Route: 058
     Dates: start: 201707
  19. PANTOPRAZOLE [Concomitant]
     Active Substance: PANTOPRAZOLE
     Dosage: 40 MG BID
     Route: 065
     Dates: start: 2009
  20. SIMVASTATIN. [Concomitant]
     Active Substance: SIMVASTATIN
     Dosage: 40 MG UNK
     Route: 065

REACTIONS (15)
  - Cough [Unknown]
  - Abdominal hernia [Unknown]
  - Gastrointestinal submucosal tumour [Unknown]
  - Fatigue [Unknown]
  - Hypertensive crisis [Unknown]
  - Gout [Unknown]
  - Thirst [Unknown]
  - Intervertebral disc displacement [Unknown]
  - Chest pain [Unknown]
  - Hepatic enzyme increased [Unknown]
  - Dyspepsia [Unknown]
  - Tremor [Unknown]
  - Blood uric acid increased [Unknown]
  - Diabetes mellitus [Unknown]
  - Vision blurred [Unknown]
